FAERS Safety Report 7008548-0 (Version None)
Quarter: 2010Q3

REPORT INFORMATION
  Report Type: 
  Country: None (occurrence: None)
  Receive Date: 20100922
  Receipt Date: 20100823
  Transmission Date: 20110219
  Serious: No
  Sender: FDA-Public Use
  Company Number: US-PFIZER INC-2010106730

PATIENT
  Sex: Female

DRUGS (4)
  1. COLESTIPOL HYDROCHLORIDE [Suspect]
     Indication: BLOOD CHOLESTEROL INCREASED
     Dosage: 2 MG, DAILY EVERY MORNING
     Route: 048
     Dates: start: 20100701
  2. LEVOTHYROXINE SODIUM [Concomitant]
     Dosage: UNK
  3. LISINOPRIL [Concomitant]
     Dosage: UNK
  4. ULTRAM [Concomitant]
     Indication: BACK PAIN
     Dosage: UNK

REACTIONS (5)
  - FEELING HOT [None]
  - FLATULENCE [None]
  - HYPERHIDROSIS [None]
  - NAUSEA [None]
  - POLLAKIURIA [None]
